FAERS Safety Report 21246169 (Version 1)
Quarter: 2022Q3

REPORT INFORMATION
  Report Type: Spontaneous
  Country: FR (occurrence: FR)
  Receive Date: 20220824
  Receipt Date: 20220824
  Transmission Date: 20221026
  Serious: Yes (Hospitalization, Other)
  Sender: FDA-Public Use
  Company Number: FR-AUROBINDO-AUR-APL-2022-032706

PATIENT
  Age: 69 Year
  Sex: Female

DRUGS (3)
  1. IRINOTECAN [Suspect]
     Active Substance: IRINOTECAN
     Indication: Adenocarcinoma pancreas
     Dosage: C1
     Route: 042
     Dates: start: 20220715, end: 20220715
  2. CALCIUM [Concomitant]
     Active Substance: CALCIUM
     Indication: Adenocarcinoma pancreas
     Dosage: C1
     Route: 042
     Dates: start: 20220715, end: 20220715
  3. OXALIPLATIN [Concomitant]
     Active Substance: OXALIPLATIN
     Indication: Adenocarcinoma pancreas
     Dosage: C1
     Route: 042
     Dates: start: 20220715, end: 20220715

REACTIONS (2)
  - Cholinergic syndrome [Recovered/Resolved]
  - Dysarthria [Recovered/Resolved]

NARRATIVE: CASE EVENT DATE: 20220715
